FAERS Safety Report 9314682 (Version 1)
Quarter: 2013Q2

REPORT INFORMATION
  Report Type: Spontaneous
  Country: CA (occurrence: CA)
  Receive Date: 20130529
  Receipt Date: 20130529
  Transmission Date: 20140414
  Serious: Yes (Hospitalization, Other)
  Sender: FDA-Public Use
  Company Number: CA-ROCHE-1229029

PATIENT
  Age: 28 Year
  Sex: Female

DRUGS (5)
  1. ACTEMRA [Suspect]
     Indication: JUVENILE IDIOPATHIC ARTHRITIS
     Route: 065
  2. RITUXAN [Suspect]
     Indication: JUVENILE IDIOPATHIC ARTHRITIS
     Route: 065
  3. ANAKINRA [Concomitant]
  4. IVIG [Concomitant]
  5. METHOTREXATE [Concomitant]

REACTIONS (3)
  - Drug ineffective [Unknown]
  - Sepsis syndrome [Recovering/Resolving]
  - Histiocytosis haematophagic [Recovering/Resolving]
